FAERS Safety Report 4785068-5 (Version None)
Quarter: 2005Q3

REPORT INFORMATION
  Report Type: 
  Country: None (occurrence: None)
  Receive Date: 20050928
  Receipt Date: 20050919
  Transmission Date: 20060218
  Serious: Yes (Hospitalization)
  Sender: FDA-Public Use
  Company Number: HQWYE459114SEP05

PATIENT
  Age: 55 Year
  Sex: Male

DRUGS (5)
  1. RAPAMUNE (SIROLIMUS, TABLET) LOT NO.: 27477 [Suspect]
     Indication: IMMUNOSUPPRESSANT DRUG THERAPY
     Dosage: 5 MG 1X PER 1 DAY ORAL
     Route: 048
     Dates: start: 20050812
  2. RAPAMUNE (SIROLIMUS, TABLET) LOT NO.: 27477 [Suspect]
     Indication: PROPHYLAXIS AGAINST TRANSPLANT REJECTION
     Dosage: 5 MG 1X PER 1 DAY ORAL
     Route: 048
     Dates: start: 20050812
  3. RANITIDINE [Concomitant]
  4. FUROSEMIDE [Concomitant]
  5. SULFAMETHOXAZOLE + TRIMETHOPRIM [Concomitant]

REACTIONS (5)
  - BLOOD CREATININE INCREASED [None]
  - COMPLICATIONS OF TRANSPLANTED KIDNEY [None]
  - HAEMODIALYSIS [None]
  - RENAL TUBULAR NECROSIS [None]
  - URINE OUTPUT INCREASED [None]
